FAERS Safety Report 11143384 (Version 3)
Quarter: 2015Q2

REPORT INFORMATION
  Report Type: Spontaneous
  Country: DE (occurrence: DE)
  Receive Date: 20150528
  Receipt Date: 20150630
  Transmission Date: 20150821
  Serious: Yes (Death, Hospitalization)
  Sender: FDA-Public Use
  Company Number: DE-ROCHE-1582849

PATIENT
  Age: 69 Year
  Sex: Male
  Weight: 54 kg

DRUGS (11)
  1. PEGFILGRASTIM [Suspect]
     Active Substance: PEGFILGRASTIM
     Indication: B-CELL LYMPHOMA
     Dosage: FREQUENCY :1 TIME IN 2 WEEKS FOR 100DAYS
     Route: 058
     Dates: start: 20141205, end: 20150314
  2. VINCRISTINE [Suspect]
     Active Substance: VINCRISTINE
     Indication: B-CELL LYMPHOMA
     Dosage: FREQUENCY :1 TIME IN 2 WEEKS FOR 99 DAYS?DATE LAST GIVEN PRIOR TO SAE: 11/MAR/2015
     Route: 042
     Dates: start: 20141203, end: 20150311
  3. SITAGLIPTIN [Concomitant]
     Active Substance: SITAGLIPTIN
     Route: 065
  4. METAMIZOLE SODIUM [Concomitant]
     Active Substance: METAMIZOLE SODIUM
     Route: 065
     Dates: start: 20141202
  5. CYCLOPHOSPHAMIDE. [Suspect]
     Active Substance: CYCLOPHOSPHAMIDE
     Indication: B-CELL LYMPHOMA
     Dosage: FREQUENCY :1 TIME IN 2 WEEKS FOR 133DAYS?DATE LAST GIVEN PRIOR TO SAE: 11/MAR/2015
     Route: 042
     Dates: start: 20141202, end: 20150413
  6. PREDNISONE. [Suspect]
     Active Substance: PREDNISONE
     Indication: B-CELL LYMPHOMA
     Dosage: 5 DAYS A CYCLE FOR 103DAYS?DATE LAST GIVEN PRIOR TO SAE: 11/MAR/2015
     Route: 048
     Dates: start: 20141203, end: 20150315
  7. RITUXIMAB [Suspect]
     Active Substance: RITUXIMAB
     Indication: B-CELL LYMPHOMA
     Dosage: FREQUENCY :1 TIME IN 2 WEEKS FOR 133DAYS?DATE LAST RITUXIMAB GIVEN PRIOR TO SAE: 13/APR/2015
     Route: 042
     Dates: start: 20141202
  8. DOXORUBICINE [Suspect]
     Active Substance: DOXORUBICIN
     Indication: B-CELL LYMPHOMA
     Dosage: FREQUENCY :1 TIME IN 2 WEEKS FOR 99 DAYS?DATE LAST GIVEN PRIOR TO SAE: 11/MAR/2015
     Route: 042
     Dates: start: 20141203, end: 20150311
  9. PANTOPRAZOLE SODIUM. [Concomitant]
     Active Substance: PANTOPRAZOLE SODIUM
     Route: 065
  10. METFORMIN [Concomitant]
     Active Substance: METFORMIN HYDROCHLORIDE
     Route: 065
  11. NALOXONE/TILIDINE [Concomitant]

REACTIONS (5)
  - General physical health deterioration [Unknown]
  - Pneumonia [Unknown]
  - Pancreatic carcinoma [Fatal]
  - Anaemia of malignant disease [Unknown]
  - Pain [Recovering/Resolving]
